FAERS Safety Report 6437516-2 (Version None)
Quarter: 2009Q4

REPORT INFORMATION
  Report Type: 
  Country: None (occurrence: None)
  Receive Date: 20091112
  Receipt Date: 20091105
  Transmission Date: 20100525
  Serious: Yes (Other)
  Sender: FDA-Public Use
  Company Number: US-ABBOTT-09P-163-0607721-00

PATIENT
  Sex: Female
  Weight: 54.48 kg

DRUGS (8)
  1. SYNTHROID [Suspect]
     Indication: HYPOTHYROIDISM
     Route: 048
     Dates: start: 19810101, end: 20070101
  2. SYNTHROID [Suspect]
     Route: 048
     Dates: start: 20070101
  3. NEXIUM [Concomitant]
     Indication: DYSPEPSIA
     Route: 048
  4. NEXIUM [Concomitant]
  5. ESTRAGEL [Concomitant]
     Indication: MENOPAUSE
     Route: 067
  6. ANDROGEL [Concomitant]
     Indication: MENOPAUSE
     Route: 067
  7. PROGESTERONE [Concomitant]
     Indication: MENOPAUSE
     Route: 048
  8. VICODIN [Concomitant]
     Indication: RENAL PAIN
     Route: 048

REACTIONS (10)
  - ARTHRALGIA [None]
  - COELIAC DISEASE [None]
  - CYSTITIS INTERSTITIAL [None]
  - DAYDREAMING [None]
  - DEAFNESS [None]
  - EAR INFECTION [None]
  - NEPHROLITHIASIS [None]
  - PHARYNGITIS STREPTOCOCCAL [None]
  - RENAL PAIN [None]
  - VESTIBULAR NEURONITIS [None]
